FAERS Safety Report 7671369-X (Version None)
Quarter: 2011Q3

REPORT INFORMATION
  Report Type: 
  Country: None (occurrence: None)
  Receive Date: 20110803
  Receipt Date: 20110719
  Transmission Date: 20111222
  Serious: Yes (Other)
  Sender: FDA-Public Use
  Company Number: IE-DEXPHARM-2011071

PATIENT
  Age: 15 Year
  Sex: Male

DRUGS (1)
  1. OMEPRAZOLE [Suspect]

REACTIONS (3)
  - TUBULOINTERSTITIAL NEPHRITIS [None]
  - COMPLICATIONS OF TRANSPLANTED KIDNEY [None]
  - RENAL TUBULAR NECROSIS [None]
